FAERS Safety Report 15698140 (Version 1)
Quarter: 2018Q4

REPORT INFORMATION
  Report Type: Report from Study
  Country: CA (occurrence: CA)
  Receive Date: 20181207
  Receipt Date: 20181207
  Transmission Date: 20190205
  Serious: Yes (Other)
  Sender: FDA-Public Use
  Company Number: CA-TEVA-2018-CA-985289

PATIENT
  Age: 68 Year
  Sex: Female

DRUGS (4)
  1. VANCOMYCIN [Concomitant]
     Active Substance: VANCOMYCIN
     Indication: PRODUCT USED FOR UNKNOWN INDICATION
     Route: 065
  2. SANDOSTATIN [Suspect]
     Active Substance: OCTREOTIDE ACETATE
     Indication: PRODUCT USED FOR UNKNOWN INDICATION
     Route: 030
  3. SANDOSTATIN [Suspect]
     Active Substance: OCTREOTIDE ACETATE
     Indication: DUMPING SYNDROME
     Route: 058
  4. OCTREOTIDE ACETATE. [Suspect]
     Active Substance: OCTREOTIDE ACETATE
     Indication: PRODUCT USED FOR UNKNOWN INDICATION
     Dosage: 300 MICROGRAM DAILY;
     Route: 058

REACTIONS (22)
  - Abdominal discomfort [Recovered/Resolved]
  - General physical health deterioration [Recovered/Resolved]
  - Malabsorption [Recovered/Resolved]
  - Malaise [Recovered/Resolved]
  - Renal failure [Recovered/Resolved]
  - Diarrhoea [Recovered/Resolved]
  - Injection site haemorrhage [Recovered/Resolved]
  - Injection site pain [Recovered/Resolved]
  - Product use in unapproved indication [Recovered/Resolved]
  - Incorrect dose administered [Recovered/Resolved]
  - Myalgia [Recovered/Resolved]
  - Discomfort [Recovered/Resolved]
  - Muscle spasms [Recovered/Resolved]
  - Needle issue [Recovered/Resolved]
  - Weight decreased [Recovered/Resolved]
  - Blood pressure systolic increased [Recovered/Resolved]
  - Body temperature decreased [Recovered/Resolved]
  - Inappropriate schedule of product administration [Recovered/Resolved]
  - Injection site mass [Recovered/Resolved]
  - Dyspnoea [Recovered/Resolved]
  - Hypoglycaemia [Recovered/Resolved]
  - Myopathy [Recovered/Resolved]
